FAERS Safety Report 8017984-5 (Version None)
Quarter: 2012Q1

REPORT INFORMATION
  Report Type: 
  Country: None (occurrence: None)
  Receive Date: 20120103
  Receipt Date: 20111229
  Transmission Date: 20120608
  Serious: Yes (Life-Threatening, Hospitalization)
  Sender: FDA-Public Use
  Company Number: FR-B.I. PHARMACEUTICALS,INC./RIDGEFIELD-2012-EU-00002GL

PATIENT
  Sex: Female

DRUGS (5)
  1. MICARDIS HCT [Suspect]
     Indication: PRODUCT USED FOR UNKNOWN INDICATION
     Route: 048
     Dates: end: 20111122
  2. PAROXETINE HCL [Suspect]
     Indication: PRODUCT USED FOR UNKNOWN INDICATION
     Route: 048
     Dates: end: 20111122
  3. ZOPICLONE [Concomitant]
  4. OXAZEPAM [Concomitant]
  5. PIPOTHIAZINE [Concomitant]

REACTIONS (10)
  - DEPRESSED LEVEL OF CONSCIOUSNESS [None]
  - VOMITING [None]
  - INAPPROPRIATE ANTIDIURETIC HORMONE SECRETION [None]
  - MUSCULAR WEAKNESS [None]
  - FALL [None]
  - HYPOKALAEMIA [None]
  - ELECTROCARDIOGRAM ABNORMAL [None]
  - HYPONATRAEMIA [None]
  - HYPOCHLORAEMIA [None]
  - CONFUSIONAL STATE [None]
